FAERS Safety Report 9288222 (Version 2)
Quarter: 2013Q2

REPORT INFORMATION
  Report Type: Spontaneous
  Country: US (occurrence: US)
  Receive Date: 20130514
  Receipt Date: 20130523
  Transmission Date: 20140414
  Serious: Yes (Hospitalization, Other)
  Sender: FDA-Public Use
  Company Number: US-SHIONOGI, INC-2013000176

PATIENT
  Age: 66 Year
  Sex: Female
  Weight: 75.7 kg

DRUGS (12)
  1. KEFLEX [Suspect]
     Indication: PRODUCT USED FOR UNKNOWN INDICATION
     Dosage: 500 MG, TID
     Route: 048
     Dates: start: 20130312, end: 20130325
  2. VITAMIN E [Concomitant]
     Indication: MEDICAL DIET
     Dosage: 400 IU, QD
     Route: 048
     Dates: start: 20130212
  3. VITAMIN C [Concomitant]
     Indication: MEDICAL DIET
     Dosage: 1000 MG, QD
     Route: 048
     Dates: start: 20130212
  4. IRON [Concomitant]
     Indication: MEDICAL DIET
     Dosage: 65 MG, QD
     Route: 048
     Dates: start: 20130212
  5. ACETAMINOPHEN [Concomitant]
     Indication: HEADACHE
     Dosage: 1000 MG, PRN
     Route: 048
     Dates: start: 1990
  6. VITAMIN D [Concomitant]
     Indication: MEDICAL DIET
     Dosage: 1000 IU, QD
     Route: 048
     Dates: start: 1993
  7. CALCIUM [Concomitant]
     Indication: MEDICAL DIET
     Dosage: 600 MG, QD
     Route: 048
     Dates: start: 1993
  8. HYDROCORTISONE [Concomitant]
     Indication: DERMATITIS ALLERGIC
     Dosage: 1 %, BID
     Route: 061
     Dates: start: 20130305, end: 20130325
  9. AMOXICILLIN [Concomitant]
     Indication: PRODUCT USED FOR UNKNOWN INDICATION
     Dosage: 500 MG, EVERY 12 HOURS PRN
     Route: 048
     Dates: start: 20130305, end: 20130325
  10. BENADRYL [Concomitant]
     Indication: DERMATITIS ALLERGIC
     Dosage: 25 MG, PRN
     Route: 065
     Dates: start: 20130305, end: 20130324
  11. BENADRYL [Concomitant]
     Dosage: 25 MG, PRN
     Route: 065
     Dates: start: 20130422
  12. ATARAX [Concomitant]
     Indication: DERMATITIS ALLERGIC
     Dosage: 25 MG, QID DAILY
     Route: 048
     Dates: start: 20130305, end: 20130310

REACTIONS (7)
  - Photosensitivity reaction [Recovered/Resolved]
  - Pharyngeal oedema [Recovered/Resolved]
  - Swollen tongue [Recovered/Resolved]
  - Dysphagia [Recovered/Resolved]
  - Dyspnoea [Recovered/Resolved]
  - Eyelid oedema [Recovered/Resolved]
  - Rash pruritic [Recovering/Resolving]
